FAERS Safety Report 21970294 (Version 2)
Quarter: 2023Q2

REPORT INFORMATION
  Report Type: Report from Study
  Country: BR (occurrence: BR)
  Receive Date: 20230209
  Receipt Date: 20230511
  Transmission Date: 20230722
  Serious: Yes (Hospitalization, Other)
  Sender: FDA-Public Use
  Company Number: BR-CELLTRION INC.-2022BR021378

PATIENT

DRUGS (10)
  1. INFLIXIMAB [Suspect]
     Active Substance: INFLIXIMAB
     Indication: Crohn^s disease
     Dosage: 3 AMPOULES EVERY 1 MONTH, ENDOVENOUS ROUTE PERFORMED BETWEEN 2 HOURS AND 2 AND A HALF HOURS
     Route: 042
     Dates: start: 20221206
  2. CIPROFLOXACIN [Concomitant]
     Active Substance: CIPROFLOXACIN
     Dosage: 12H/12H
     Route: 048
     Dates: start: 20230317
  3. METRONIDAZOLE [Concomitant]
     Active Substance: METRONIDAZOLE
     Dosage: 2 TABLET EVERY 8 HOURS
     Route: 048
     Dates: start: 20230317
  4. DIMENHYDRINATE\PYRIDOXINE [Concomitant]
     Active Substance: DIMENHYDRINATE\PYRIDOXINE
     Route: 048
  5. AZATHIOPRINE [Concomitant]
     Active Substance: AZATHIOPRINE
     Dosage: 1 TABLET A DAY
     Route: 048
  6. MESALAMINE [Concomitant]
     Active Substance: MESALAMINE
     Dosage: 2 TABLETS A DAY
     Route: 048
  7. PREDNISONE [Concomitant]
     Active Substance: PREDNISONE
     Dosage: 1 TIME A DAY
     Route: 048
  8. DOMPERIDONE [Concomitant]
     Active Substance: DOMPERIDONE
     Dosage: UNK
     Route: 048
  9. FERROUS SULFATE [Concomitant]
     Active Substance: FERROUS SULFATE
     Dosage: UNK
     Route: 048
  10. ALUMINUM HYDROXIDE [Concomitant]
     Active Substance: ALUMINUM HYDROXIDE
     Dosage: IN CASE OF REFLUX
     Route: 048

REACTIONS (7)
  - Thrombosis [Unknown]
  - Peripheral swelling [Recovering/Resolving]
  - Swelling face [Unknown]
  - Inflammation [Unknown]
  - Pain [Unknown]
  - Abdominal pain [Unknown]
  - Intentional product use issue [Unknown]

NARRATIVE: CASE EVENT DATE: 20221209
